FAERS Safety Report 20812786 (Version 1)
Quarter: 2022Q2

REPORT INFORMATION
  Report Type: Spontaneous
  Country: US (occurrence: US)
  Receive Date: 20220511
  Receipt Date: 20220511
  Transmission Date: 20220721
  Serious: No
  Sender: FDA-Public Use
  Company Number: US-JNJFOC-20220514920

PATIENT
  Sex: Female

DRUGS (3)
  1. INVEGA SUSTENNA [Suspect]
     Active Substance: PALIPERIDONE PALMITATE
     Indication: Product used for unknown indication
     Route: 030
     Dates: start: 202112
  2. INVEGA SUSTENNA [Suspect]
     Active Substance: PALIPERIDONE PALMITATE
     Route: 030
  3. INVEGA SUSTENNA [Suspect]
     Active Substance: PALIPERIDONE PALMITATE

REACTIONS (7)
  - Feeling of relaxation [Unknown]
  - Head discomfort [Unknown]
  - Hypoaesthesia [Unknown]
  - COVID-19 [Unknown]
  - Bruxism [Unknown]
  - Disturbance in social behaviour [Unknown]
  - Nervousness [Unknown]

NARRATIVE: CASE EVENT DATE: 20220506
